FAERS Safety Report 4838264-2 (Version None)
Quarter: 2005Q4

REPORT INFORMATION
  Report Type: 
  Country: None (occurrence: None)
  Receive Date: 20051128
  Receipt Date: 20051004
  Transmission Date: 20060501
  Serious: Yes (Hospitalization)
  Sender: FDA-Public Use
  Company Number: US-MERCK-0510USA03095

PATIENT
  Age: 71 Year
  Sex: Female
  Weight: 67 kg

DRUGS (28)
  1. VIOXX [Suspect]
     Indication: OSTEOARTHRITIS
     Route: 048
     Dates: start: 20030801, end: 20040930
  2. ALBUTEROL [Concomitant]
     Route: 065
  3. DIFLUCAN [Concomitant]
     Route: 065
  4. PREVACID [Concomitant]
     Route: 065
  5. PREDNISONE [Concomitant]
     Route: 065
  6. PREDNISONE [Concomitant]
     Route: 065
  7. FERROUS SULFATE [Concomitant]
     Route: 065
  8. LORAZEPAM [Concomitant]
     Route: 065
  9. COMBIVENT [Concomitant]
     Route: 065
  10. CIPROFLOXACIN [Concomitant]
     Route: 065
  11. HYDROCODONE BITARTRATE [Concomitant]
     Route: 065
  12. CEPHALEXIN [Concomitant]
     Route: 065
  13. LOTREL [Concomitant]
     Route: 065
  14. TOPROL-XL [Concomitant]
     Route: 065
  15. METRONIDAZOLE [Concomitant]
     Route: 065
  16. ATROPINE SULFATE AND DIPHENOXYLATE HYDROCHLORIDE [Concomitant]
     Route: 065
  17. ZOCOR [Concomitant]
     Route: 048
  18. ASACOL [Concomitant]
     Route: 065
  19. FLONASE [Concomitant]
     Route: 065
  20. COLAZAL [Concomitant]
     Route: 065
  21. TESTOSTERONE ENANTHATE [Concomitant]
     Route: 065
  22. ZYMAR [Concomitant]
     Route: 065
  23. LOTEMAX [Concomitant]
     Route: 065
  24. PROTONIX [Concomitant]
     Route: 065
  25. PLAVIX [Concomitant]
     Route: 065
  26. ANDEHIST DM NR SYRUP [Concomitant]
     Route: 065
  27. AMPICILLIN [Concomitant]
     Route: 065
  28. IBUPROFEN [Concomitant]
     Route: 065

REACTIONS (5)
  - ACUTE CORONARY SYNDROME [None]
  - GALLBLADDER DISORDER [None]
  - MYOCARDIAL INFARCTION [None]
  - PNEUMONIA [None]
  - ULCER HAEMORRHAGE [None]
